FAERS Safety Report 4391440-8 (Version None)
Quarter: 2004Q3

REPORT INFORMATION
  Report Type: 
  Country: None (occurrence: None)
  Receive Date: 20040707
  Receipt Date: 20040525
  Transmission Date: 20050211
  Serious: Yes (Other)
  Sender: FDA-Public Use
  Company Number: AU-GLAXOSMITHKLINE-B0334297A

PATIENT
  Age: 48 Year
  Sex: Male

DRUGS (3)
  1. ZYBAN [Suspect]
     Dosage: 150MG TWICE PER DAY
     Route: 048
     Dates: start: 20040511, end: 20040516
  2. SPIRIVA [Concomitant]
     Route: 055
     Dates: start: 20030915
  3. VENTOLIN [Concomitant]
     Route: 055

REACTIONS (4)
  - CONSTIPATION [None]
  - HALLUCINATION [None]
  - NAUSEA [None]
  - SMOKER [None]
